FAERS Safety Report 5195002-4 (Version None)
Quarter: 2006Q4

REPORT INFORMATION
  Report Type: 
  Country: None (occurrence: None)
  Receive Date: 20061229
  Receipt Date: 20061121
  Transmission Date: 20070319
  Serious: Yes (Other)
  Sender: FDA-Public Use
  Company Number: JP-MERCK-0611USA06223

PATIENT
  Age: 89 Year
  Sex: Female
  Weight: 40 kg

DRUGS (7)
  1. FOSAMAX [Suspect]
     Indication: OSTEOPOROSIS
     Route: 048
     Dates: start: 20061002, end: 20061112
  2. ASPIRIN [Concomitant]
     Indication: ANTICOAGULANT THERAPY
     Route: 048
     Dates: start: 20050819
  3. ALDIOXA [Concomitant]
     Indication: GASTRIC DISORDER
     Route: 048
     Dates: start: 20050819
  4. RASANEN [Concomitant]
     Indication: CARDIAC FAILURE
     Route: 048
     Dates: start: 20050819, end: 20061112
  5. MEXITIL [Concomitant]
     Indication: VENTRICULAR ASYSTOLE
     Route: 048
     Dates: start: 20051019, end: 20061112
  6. DIOVAN [Concomitant]
     Indication: HYPERTENSION
     Route: 048
     Dates: start: 20060719
  7. AMARYL [Concomitant]
     Indication: DIABETES MELLITUS
     Route: 048
     Dates: start: 20060509

REACTIONS (2)
  - DRUG ERUPTION [None]
  - LEUKOPLAKIA ORAL [None]
